FAERS Safety Report 8120514 (Version 2)
Quarter: 2013Q1

REPORT INFORMATION
  Report Type: Spontaneous
  Country: DE (occurrence: None)
  Receive Date: 20110823
  Receipt Date: 20121116
  Transmission Date: 20140127
  Serious: Yes (Hospitalization)
  Sender: FDA-Public Use
  Company Number: DSM-2011-00765

PATIENT
  Age: 75 Year
  Sex: Male
  Weight: 87 kg

DRUGS (4)
  1. AMLODIPINE BESYLATE\HYDROCHLOROTHIAZIDE\OLMESARTAN MEDOXOMIL [Suspect]
     Indication: HYPERTENSION
     Route: 048
     Dates: start: 20110523
  2. AMLODIPINE [Concomitant]
  3. METOPROLOL (METOPROLOL) (100 MILLIGRAM) (METOPROLOL) [Concomitant]
  4. MARCUMAR (PHENPROCOUMON) (PHENPROCOUMON) [Concomitant]

REACTIONS (3)
  - Cerebrovascular accident [None]
  - Atrial fibrillation [None]
  - Hypotension [None]
